FAERS Safety Report 8764292 (Version 1)
Quarter: 2012Q4

REPORT INFORMATION
  Report Type: 
  Country: DE (occurrence: DE)
  Receive Date: 20120831
  Receipt Date: 20120831
  Transmission Date: 20130627
  Serious: Yes (Hospitalization)
  Sender: FDA-Public Use
  Company Number: DE-PFIZER INC-2012210085

PATIENT
  Age: 68 Year
  Sex: Male
  Weight: 83.7 kg

DRUGS (13)
  1. GENOTROPIN [Suspect]
     Indication: GROWTH HORMONE DEFICIENCY
     Dosage: 0.13 mg, 7/wk
     Route: 058
     Dates: start: 20060412, end: 20091129
  2. TESTOSTERONE [Concomitant]
     Indication: BLOOD LUTEINISING HORMONE DECREASED
     Dosage: UNK
     Dates: start: 19941201
  3. TESTOSTERONE [Concomitant]
     Indication: BLOOD FOLLICLE STIMULATING HORMONE DECREASED
  4. TESTOSTERONE [Concomitant]
     Indication: HYPOGONADISM MALE
  5. ACETYLSALICYLIC ACID [Concomitant]
     Indication: EMBOLISM VENOUS
     Dosage: UNK
     Dates: start: 19950701
  6. ACETYLSALICYLIC ACID [Concomitant]
     Indication: THROMBOSIS
  7. HYDROCORTISONE [Concomitant]
     Indication: BLOOD CORTICOTROPHIN DECREASED
     Dosage: UNK
     Dates: start: 19941201
  8. LEVOTHYROXINE [Concomitant]
     Indication: BLOOD THYROID STIMULATING HORMONE DECREASED
     Dosage: UNK
     Dates: start: 19941201
  9. LEVOTHYROXINE [Concomitant]
     Indication: PRIMARY HYPOTHYROIDISM
  10. ATORVASTATIN [Concomitant]
     Indication: HYPERCHOLESTEROLAEMIA
     Dosage: UNK
     Dates: start: 20010328
  11. VALSARTAN [Concomitant]
     Indication: HYPERTENSION
     Dosage: UNK
     Dates: start: 20080615
  12. CARVEDILOL [Concomitant]
     Dosage: UNK
     Dates: start: 20041015
  13. AMLODIPINE [Concomitant]
     Indication: HYPOTONIA
     Dosage: UNK
     Dates: start: 20080115

REACTIONS (1)
  - Arthropathy [Unknown]
